FAERS Safety Report 20167312 (Version 3)
Quarter: 2022Q2

REPORT INFORMATION
  Report Type: Spontaneous
  Country: US (occurrence: US)
  Receive Date: 20211209
  Receipt Date: 20220414
  Transmission Date: 20220720
  Serious: Yes (Hospitalization)
  Sender: FDA-Public Use
  Company Number: US-KARYOPHARM-2021KPT001519

PATIENT

DRUGS (8)
  1. XPOVIO [Suspect]
     Active Substance: SELINEXOR
     Indication: Plasma cell myeloma
     Dosage: 60 MG, WEEKLY
     Route: 048
     Dates: start: 20211119, end: 2022
  2. ACYCLOVIR [Concomitant]
     Active Substance: ACYCLOVIR
  3. DECADRON [Concomitant]
     Active Substance: DEXAMETHASONE
  4. ZYPREXA [Concomitant]
     Active Substance: OLANZAPINE
  5. COMPAZINE [Concomitant]
     Active Substance: PROCHLORPERAZINE MALEATE
     Dosage: UNK
     Route: 048
  6. COMPAZINE [Concomitant]
     Active Substance: PROCHLORPERAZINE MALEATE
     Dosage: UNK
     Route: 054
  7. TOPROL XL [Concomitant]
     Active Substance: METOPROLOL SUCCINATE
  8. DIPHENHYDRAMINE;LIDOCAINE;NYSTATIN [Concomitant]

REACTIONS (3)
  - Pain in extremity [Unknown]
  - Pneumonia [Unknown]
  - Plasma cell myeloma [Unknown]

NARRATIVE: CASE EVENT DATE: 20211123
